FAERS Safety Report 7862889-3 (Version None)
Quarter: 2011Q4

REPORT INFORMATION
  Report Type: 
  Country: None (occurrence: None)
  Receive Date: 20111027
  Receipt Date: 20101117
  Transmission Date: 20120403
  Serious: No
  Sender: FDA-Public Use
  Company Number: US-AMGEN-TCS424738

PATIENT
  Age: 81 Year
  Sex: Female

DRUGS (1)
  1. ENBREL [Suspect]
     Indication: RHEUMATOID ARTHRITIS
     Dosage: 25 MG, QWK
     Route: 058
     Dates: start: 19990201

REACTIONS (4)
  - RHEUMATOID ARTHRITIS [None]
  - INJECTION SITE PAIN [None]
  - DIZZINESS [None]
  - BRAIN NATRIURETIC PEPTIDE INCREASED [None]
